FAERS Safety Report 4354755-5 (Version None)
Quarter: 2004Q2

REPORT INFORMATION
  Report Type: 
  Country: None (occurrence: None)
  Receive Date: 20040507
  Receipt Date: 20011120
  Transmission Date: 20050107
  Serious: Yes (Death, Life-Threatening, Hospitalization)
  Sender: FDA-Public Use
  Company Number: 11598489

PATIENT
  Age: 81 Year
  Sex: Male

DRUGS (5)
  1. VEPESID [Suspect]
     Indication: SMALL CELL LUNG CANCER STAGE UNSPECIFIED
     Route: 042
     Dates: start: 19940921, end: 19940921
  2. PARAPLATIN [Suspect]
     Indication: SMALL CELL LUNG CANCER STAGE UNSPECIFIED
     Route: 042
     Dates: start: 19940921, end: 19940921
  3. CEFAZOLIN [Concomitant]
     Route: 042
     Dates: start: 19940928, end: 19940928
  4. MODACIN [Concomitant]
     Route: 042
     Dates: start: 19941006, end: 19941021
  5. SULPERAZONE [Concomitant]
     Route: 042
     Dates: start: 19940929, end: 19941005

REACTIONS (7)
  - ANOREXIA [None]
  - LEUKOPENIA [None]
  - NAUSEA [None]
  - PNEUMONIA [None]
  - RENAL FAILURE [None]
  - THROMBOCYTOPENIA [None]
  - VOMITING [None]
